FAERS Safety Report 19913626 (Version 1)
Quarter: 2021Q4

REPORT INFORMATION
  Report Type: Spontaneous
  Country: SE (occurrence: US)
  Receive Date: 20211004
  Receipt Date: 20211004
  Transmission Date: 20220303
  Serious: No
  Sender: FDA-Public Use
  Company Number: SE-OTSUKA-2020_022393

PATIENT
  Age: 83 Year
  Sex: Female

DRUGS (7)
  1. TOLVAPTAN [Suspect]
     Active Substance: TOLVAPTAN
     Indication: Hyponatraemia
     Dosage: 7.5 MG, QD
     Route: 048
  2. TOLVAPTAN [Suspect]
     Active Substance: TOLVAPTAN
     Dosage: 15 MG, QD
     Route: 048
  3. TOLVAPTAN [Suspect]
     Active Substance: TOLVAPTAN
     Dosage: 30 MG, QD (DIVIDED DOSE)
     Route: 048
  4. BACTRIM [Concomitant]
     Active Substance: SULFAMETHOXAZOLE\TRIMETHOPRIM
     Indication: Product used for unknown indication
     Dosage: 160 MG, Q 8H
     Route: 042
  5. SALT [Concomitant]
     Active Substance: SODIUM CHLORIDE
     Indication: Product used for unknown indication
     Dosage: 1 G, UNK
     Route: 065
  6. SALT [Concomitant]
     Active Substance: SODIUM CHLORIDE
     Dosage: 3 G, UNK
     Route: 065
  7. SALT [Concomitant]
     Active Substance: SODIUM CHLORIDE
     Dosage: 8 G, UNK
     Route: 065

REACTIONS (1)
  - Drug effective for unapproved indication [Unknown]
